FAERS Safety Report 5425956-X (Version None)
Quarter: 2007Q3

REPORT INFORMATION
  Report Type: 
  Country: None (occurrence: None)
  Receive Date: 20070824
  Receipt Date: 20070824
  Transmission Date: 20080115
  Serious: Yes (Hospitalization)
  Sender: FDA-Public Use
  Company Number: None

PATIENT
  Age: 70 Year
  Sex: Female
  Weight: 86 kg

DRUGS (5)
  1. CEFAZOLIN [Suspect]
     Indication: INFECTION
     Dosage: 1 Q IV Q 8?
     Route: 042
     Dates: start: 20070505, end: 20070509
  2. KEFLEX [Suspect]
     Dosage: 500 MG PO QID
     Route: 048
     Dates: start: 20070409, end: 20070419
  3. NISOLDIPINE [Concomitant]
  4. ATORVASTATIN CALCIUM [Concomitant]
  5. BENICAR [Concomitant]

REACTIONS (3)
  - DRUG INEFFECTIVE [None]
  - ERYTHEMA MULTIFORME [None]
  - SUPERINFECTION [None]
